FAERS Safety Report 7099463-5 (Version None)
Quarter: 2010Q4

REPORT INFORMATION
  Report Type: 
  Country: None (occurrence: None)
  Receive Date: 20101112
  Receipt Date: 20101109
  Transmission Date: 20110411
  Serious: Yes (Other)
  Sender: FDA-Public Use
  Company Number: US-JNJCH-2010025669

PATIENT
  Sex: Female

DRUGS (1)
  1. BENGAY ULTRA STRENGTH PATCH [Suspect]
     Indication: BACK PAIN
     Dosage: TEXT:ONE PATCH ONCE
     Route: 061
     Dates: start: 20100909, end: 20100909

REACTIONS (6)
  - APPLICATION SITE PRURITUS [None]
  - BURNS SECOND DEGREE [None]
  - CHEMICAL INJURY [None]
  - DRUG INEFFECTIVE [None]
  - PAIN [None]
  - PRODUCT QUALITY ISSUE [None]
